FAERS Safety Report 4611357-0 (Version None)
Quarter: 2005Q1

REPORT INFORMATION
  Report Type: 
  Country: None (occurrence: None)
  Receive Date: 20050317
  Receipt Date: 20050307
  Transmission Date: 20050727
  Serious: Yes (Death, Other)
  Sender: FDA-Public Use
  Company Number: US-BRISTOL-MYERS SQUIBB COMPANY-12888863

PATIENT
  Age: 42 Year
  Sex: Male

DRUGS (5)
  1. BUSPAR [Suspect]
     Dosage: DURATION: }1 YEAR
  2. CLOZAPINE [Suspect]
     Indication: SCHIZOAFFECTIVE DISORDER
     Dosage: DOSAGE: 50-400MG DAILY
     Route: 048
     Dates: start: 20010201, end: 20041101
  3. IMIPRAMINE [Suspect]
  4. AMITRIPTYLINE HCL [Suspect]
  5. LUVOX [Suspect]

REACTIONS (2)
  - ACCIDENTAL OVERDOSE [None]
  - DRUG TOXICITY [None]
